FAERS Safety Report 23270582 (Version 1)
Quarter: 2023Q4

REPORT INFORMATION
  Report Type: Spontaneous
  Country: US (occurrence: US)
  Receive Date: 20231207
  Receipt Date: 20231207
  Transmission Date: 20240110
  Serious: Yes (Other)
  Sender: FDA-Public Use
  Company Number: US-OPELLA-2023OHG017577

PATIENT
  Sex: Female

DRUGS (1)
  1. TALC [Suspect]
     Active Substance: TALC
     Indication: Product used for unknown indication
     Route: 065

REACTIONS (7)
  - Mesothelioma [Unknown]
  - Exposure to chemical pollution [Unknown]
  - Pain [Unknown]
  - Separation anxiety disorder [Unknown]
  - Nervousness [Unknown]
  - General physical health deterioration [Unknown]
  - Emotional distress [Unknown]
